FAERS Safety Report 13659660 (Version 5)
Quarter: 2017Q4

REPORT INFORMATION
  Report Type: Report from Study
  Country: US (occurrence: US)
  Receive Date: 20170616
  Receipt Date: 20171113
  Transmission Date: 20180320
  Serious: Yes (Death)
  Sender: FDA-Public Use
  Company Number: PHEH2017US018299

PATIENT
  Age: 44 Year
  Sex: Male
  Weight: 85 kg

DRUGS (2)
  1. GLEEVEC [Suspect]
     Active Substance: IMATINIB MESYLATE
     Indication: CHRONIC MYELOID LEUKAEMIA
     Dosage: 200 MG, UNK
     Route: 048
     Dates: start: 20150219, end: 20150424
  2. GLEEVEC [Suspect]
     Active Substance: IMATINIB MESYLATE
     Indication: GASTROINTESTINAL STROMAL TUMOUR
     Dosage: UNK
     Route: 065
     Dates: start: 20160727

REACTIONS (8)
  - Malignant neoplasm progression [Fatal]
  - Gastrointestinal stromal tumour [Fatal]
  - Abdominal pain [Recovered/Resolved with Sequelae]
  - Metastases to liver [Fatal]
  - Fatigue [Recovered/Resolved]
  - Confusional state [Fatal]
  - Chronic myeloid leukaemia [Fatal]
  - Dysphonia [Recovered/Resolved]

NARRATIVE: CASE EVENT DATE: 20150402
